FAERS Safety Report 10898077 (Version 1)
Quarter: 2015Q1

REPORT INFORMATION
  Report Type: Report from Study
  Country: US (occurrence: US)
  Receive Date: 20150309
  Receipt Date: 20150309
  Transmission Date: 20150721
  Serious: No
  Sender: FDA-Public Use
  Company Number: US-ABBVIE-15P-163-1353936-00

PATIENT
  Age: 46 Year
  Sex: Female
  Weight: 98.52 kg

DRUGS (1)
  1. LUPRON DEPOT [Suspect]
     Active Substance: LEUPROLIDE ACETATE
     Indication: UTERINE LEIOMYOMA
     Route: 030
     Dates: start: 201408

REACTIONS (5)
  - Drug dose omission [Not Recovered/Not Resolved]
  - Micturition urgency [Recovering/Resolving]
  - Arthralgia [Recovered/Resolved]
  - Bladder discomfort [Recovering/Resolving]
  - Back pain [Recovering/Resolving]

NARRATIVE: CASE EVENT DATE: 201409
